FAERS Safety Report 16483378 (Version 1)
Quarter: 2019Q2

REPORT INFORMATION
  Report Type: Spontaneous
  Country: US (occurrence: US)
  Receive Date: 20190515
  Receipt Date: 20190515
  Transmission Date: 20190711
  Serious: Yes (Other)
  Sender: FDA-Public Use
  Company Number: None

PATIENT
  Age: 46 Year
  Sex: Male
  Weight: 90.72 kg

DRUGS (1)
  1. LAST - MALE ENDURANCE SPRAY [LIDOCAINE] [Suspect]
     Active Substance: LIDOCAINE
     Indication: PREMATURE EJACULATION
     Route: 061
     Dates: start: 20190509, end: 20190509

REACTIONS (1)
  - Thermal burn [None]

NARRATIVE: CASE EVENT DATE: 20190509
